FAERS Safety Report 12967479 (Version 2)
Quarter: 2017Q1

REPORT INFORMATION
  Report Type: Spontaneous
  Country: US (occurrence: US)
  Receive Date: 20161123
  Receipt Date: 20170102
  Transmission Date: 20170428
  Serious: Yes (Hospitalization)
  Sender: FDA-Public Use
  Company Number: US-SUN PHARMACEUTICAL INDUSTRIES LTD-2016US-128110

PATIENT
  Age: 53 Year
  Sex: Female

DRUGS (1)
  1. FLURBIPROFEN. [Suspect]
     Active Substance: FLURBIPROFEN
     Indication: PAIN
     Dosage: 100 MG, BID
     Route: 065

REACTIONS (2)
  - Obstruction gastric [Recovered/Resolved]
  - Duodenitis [Recovered/Resolved]
